FAERS Safety Report 4821534-1 (Version None)
Quarter: 2005Q4

REPORT INFORMATION
  Report Type: 
  Country: None (occurrence: None)
  Receive Date: 20051103
  Receipt Date: 20051017
  Transmission Date: 20060501
  Serious: Yes (Life-Threatening)
  Sender: FDA-Public Use
  Company Number: US_0508120699

PATIENT
  Age: 56 Year
  Sex: Male

DRUGS (3)
  1. FLUOXETINE [Suspect]
     Indication: DEPRESSION
     Dosage: 60 MG DAY
  2. ZYPREXA [Suspect]
     Indication: DEPRESSION
     Dosage: 2.5 MG AT BEDTIME
  3. BUSPIRONE HCL [Concomitant]

REACTIONS (2)
  - INAPPROPRIATE ANTIDIURETIC HORMONE SECRETION [None]
  - SEROTONIN SYNDROME [None]
